FAERS Safety Report 5052785-1 (Version None)
Quarter: 2006Q3

REPORT INFORMATION
  Report Type: 
  Country: None (occurrence: None)
  Receive Date: 20060717
  Receipt Date: 20060705
  Transmission Date: 20061208
  Serious: Yes (Other)
  Sender: FDA-Public Use
  Company Number: PHNR2006AU00873

PATIENT
  Sex: Female

DRUGS (1)
  1. GLEEVEC [Suspect]
     Dosage: UNK, UNK

REACTIONS (5)
  - DYSLIPIDAEMIA [None]
  - FACE OEDEMA [None]
  - PIGMENTATION DISORDER [None]
  - PSORIASIS [None]
  - RASH [None]
